FAERS Safety Report 6048054-3 (Version None)
Quarter: 2009Q1

REPORT INFORMATION
  Report Type: 
  Country: None (occurrence: None)
  Receive Date: 20090123
  Receipt Date: 20090113
  Transmission Date: 20090719
  Serious: Yes (Hospitalization)
  Sender: FDA-Public Use
  Company Number: JP-PFIZER INC-2009154645

PATIENT

DRUGS (5)
  1. ALDACTONE [Suspect]
     Dosage: 25 MG, 1X/DAY
     Route: 048
     Dates: start: 20080715
  2. CRESTOR [Suspect]
     Dosage: 2.5 MG, 1X/DAY
     Route: 048
  3. ACINON [Suspect]
     Dosage: 300 MG, 1X/DAY
     Route: 048
  4. FUROSEMIDE [Concomitant]
     Route: 048
  5. DORNER [Concomitant]
     Route: 048

REACTIONS (1)
  - HYPOGLYCAEMIA [None]
